FAERS Safety Report 10259586 (Version 1)
Quarter: 2014Q2

REPORT INFORMATION
  Report Type: Spontaneous
  Country: US (occurrence: US)
  Receive Date: 20140625
  Receipt Date: 20140625
  Transmission Date: 20141212
  Serious: No
  Sender: FDA-Public Use
  Company Number: US-TEVA-490445USA

PATIENT
  Age: 25 Year
  Sex: Female
  Weight: 98.06 kg

DRUGS (3)
  1. PARAGARD 380A [Suspect]
     Indication: CONTRACEPTION
     Route: 015
     Dates: start: 201307
  2. TEGRETOL [Concomitant]
     Indication: EPILEPSY
  3. LAMICTAL [Concomitant]
     Indication: EPILEPSY

REACTIONS (2)
  - Menstruation delayed [Recovered/Resolved]
  - Device expulsion [Not Recovered/Not Resolved]
